FAERS Safety Report 19906175 (Version 1)
Quarter: 2021Q4

REPORT INFORMATION
  Report Type: Spontaneous
  Country: GB (occurrence: GB)
  Receive Date: 20211001
  Receipt Date: 20211001
  Transmission Date: 20220303
  Serious: Yes (Other)
  Sender: FDA-Public Use
  Company Number: GB-VERTEX PHARMACEUTICALS-2021-015009

PATIENT
  Sex: Female

DRUGS (3)
  1. ELEXACAFTOR\IVACAFTOR\TEZACAFTOR [Suspect]
     Active Substance: ELEXACAFTOR\IVACAFTOR\TEZACAFTOR
     Indication: Cystic fibrosis
     Dosage: (75MG IVACAFTOR/50MG TEZACAFTOR/100MG ELEXACAFTOR) UNK FREQ
     Route: 048
     Dates: start: 2021, end: 2021
  2. ELEXACAFTOR\IVACAFTOR\TEZACAFTOR [Suspect]
     Active Substance: ELEXACAFTOR\IVACAFTOR\TEZACAFTOR
     Dosage: 2 TABS A WEEK
     Route: 048
     Dates: start: 202104
  3. KALYDECO [Suspect]
     Active Substance: IVACAFTOR
     Indication: Cystic fibrosis
     Dosage: 1 TABLET (150MG IVACAFTOR) PM
     Route: 048
     Dates: start: 2021, end: 202104

REACTIONS (1)
  - Transplant [Unknown]

NARRATIVE: CASE EVENT DATE: 20210401
